FAERS Safety Report 12389830 (Version 7)
Quarter: 2018Q4

REPORT INFORMATION
  Report Type: Spontaneous
  Country: US (occurrence: US)
  Receive Date: 20160520
  Receipt Date: 20181022
  Transmission Date: 20190204
  Serious: Yes (Hospitalization)
  Sender: FDA-Public Use
  Company Number: US-ACTELION-A-US2016-136516

PATIENT
  Age: 63 Year
  Sex: Female

DRUGS (11)
  1. CARVEDILOL. [Concomitant]
     Active Substance: CARVEDILOL
  2. METRONIDAZOLE. [Concomitant]
     Active Substance: METRONIDAZOLE
  3. ADCIRCA [Concomitant]
     Active Substance: TADALAFIL
  4. MIRTAZAPIN [Concomitant]
     Active Substance: MIRTAZAPINE
  5. MORPHINE [Concomitant]
     Active Substance: MORPHINE
  6. OPSUMIT [Suspect]
     Active Substance: MACITENTAN
     Indication: PULMONARY ARTERIAL HYPERTENSION
     Dosage: 10 MG, QD
     Route: 048
     Dates: start: 20160419, end: 20160519
  7. ALBUTEROL. [Concomitant]
     Active Substance: ALBUTEROL
  8. ABILIFY [Concomitant]
     Active Substance: ARIPIPRAZOLE
  9. VELETRI [Suspect]
     Active Substance: EPOPROSTENOL
     Indication: PULMONARY ARTERIAL HYPERTENSION
     Route: 042
  10. NORVASC [Concomitant]
     Active Substance: AMLODIPINE BESYLATE
  11. LASIX [Concomitant]
     Active Substance: FUROSEMIDE

REACTIONS (10)
  - Therapy non-responder [Recovered/Resolved]
  - Pulmonary hypertension [Unknown]
  - Dyspnoea [Unknown]
  - Decreased appetite [Not Recovered/Not Resolved]
  - Cor pulmonale chronic [Unknown]
  - Cardiac disorder [Not Recovered/Not Resolved]
  - Unevaluable event [Unknown]
  - Vomiting [Recovered/Resolved]
  - Respiratory failure [Not Recovered/Not Resolved]
  - Fluid overload [Not Recovered/Not Resolved]

NARRATIVE: CASE EVENT DATE: 20160425
